FAERS Safety Report 7418811-7 (Version None)
Quarter: 2011Q2

REPORT INFORMATION
  Report Type: 
  Country: None (occurrence: None)
  Receive Date: 20110407
  Receipt Date: 20110323
  Transmission Date: 20111010
  Serious: Yes (Hospitalization)
  Sender: FDA-Public Use
  Company Number: 029387

PATIENT
  Sex: Male

DRUGS (11)
  1. PREDNISOLONE [Suspect]
     Indication: RHEUMATOID ARTHRITIS
     Dosage: 5 MG, ORAL; 10 MG, ORAL; 15 MG, (TAPERED DOWN TO 5 MG)
     Route: 048
     Dates: start: 20100209, end: 20100302
  2. PREDNISOLONE [Suspect]
     Indication: RHEUMATOID ARTHRITIS
     Dosage: 5 MG, ORAL; 10 MG, ORAL; 15 MG, (TAPERED DOWN TO 5 MG)
     Route: 048
     Dates: start: 20110303
  3. PREDNISOLONE [Suspect]
     Indication: RHEUMATOID ARTHRITIS
     Dosage: 5 MG, ORAL; 10 MG, ORAL; 15 MG, (TAPERED DOWN TO 5 MG)
     Route: 048
     Dates: start: 20110301, end: 20110301
  4. PREDNISOLONE [Suspect]
     Indication: RHEUMATOID ARTHRITIS
     Dosage: 5 MG, ORAL; 10 MG, ORAL; 15 MG, (TAPERED DOWN TO 5 MG)
     Route: 048
     Dates: start: 20110301
  5. BUTENAFINE HYDROCHLORIDE [Concomitant]
  6. ETIZOLAM [Concomitant]
  7. OMEPRAZOLE [Concomitant]
  8. CERTOLIZUMAB PEGOL (CERTOLIZUMAB PEGOL) [Suspect]
     Indication: RHEUMATOID ARTHRITIS
     Dosage: 200 MG, 1X/2 WEEKS, SUBCUTANEOUS
     Route: 058
     Dates: start: 20100531
  9. LORNOXICAM [Concomitant]
  10. KETOPROFEN [Concomitant]
  11. FELBINAC [Concomitant]

REACTIONS (4)
  - MALAISE [None]
  - GAIT DISTURBANCE [None]
  - ARTHRALGIA [None]
  - PNEUMONIA [None]
